FAERS Safety Report 5793483 (Version 2)
Quarter: 2016Q1

REPORT INFORMATION
  Report Type: Spontaneous
  Country: FR (occurrence: FR)
  Receive Date: 20050511
  Receipt Date: 20160202
  Transmission Date: 20160526
  Serious: Yes (Disabling, Other)
  Sender: FDA-Public Use
  Company Number: FR-BRISTOL-MYERS SQUIBB COMPANY-12954756

PATIENT
  Age: 0 Day
  Sex: Male

DRUGS (3)
  1. SEROPRAM [Suspect]
     Active Substance: CITALOPRAM HYDROBROMIDE
     Indication: PRODUCT USED FOR UNKNOWN INDICATION
     Dosage: UNK
     Route: 064
  2. XANAX [Suspect]
     Active Substance: ALPRAZOLAM
     Indication: PRODUCT USED FOR UNKNOWN INDICATION
     Dosage: UNK
     Route: 064
  3. BUSPAR [Suspect]
     Active Substance: BUSPIRONE HYDROCHLORIDE
     Indication: PRODUCT USED FOR UNKNOWN INDICATION
     Dosage: UNK
     Route: 064

REACTIONS (5)
  - Epiphyses delayed fusion [Recovered/Resolved with Sequelae]
  - Foetal exposure during pregnancy [Unknown]
  - Multiple congenital abnormalities [Recovered/Resolved with Sequelae]
  - Pierre Robin syndrome [Recovered/Resolved with Sequelae]
  - Talipes [Recovered/Resolved with Sequelae]

NARRATIVE: CASE EVENT DATE: 20040123
